FAERS Safety Report 7968532-7 (Version None)
Quarter: 2011Q4

REPORT INFORMATION
  Report Type: 
  Country: None (occurrence: None)
  Receive Date: 20111209
  Receipt Date: 20111208
  Transmission Date: 20120403
  Serious: Yes (Hospitalization)
  Sender: FDA-Public Use
  Company Number: SE-JNJFOC-20111107679

PATIENT
  Sex: Female

DRUGS (5)
  1. METHOTREXATE [Concomitant]
     Dates: start: 20060921
  2. SIMPONI [Suspect]
     Indication: RHEUMATOID ARTHRITIS
     Route: 058
     Dates: start: 20110124, end: 20111111
  3. IBUPROFEN [Concomitant]
     Dates: start: 20060921
  4. PREDNISOLONE [Concomitant]
     Dates: start: 20071126
  5. PLAQUENIL [Concomitant]
     Dates: start: 20071126

REACTIONS (2)
  - PERICARDITIS [None]
  - PNEUMONIA [None]
